FAERS Safety Report 10920321 (Version 2)
Quarter: 2015Q2

REPORT INFORMATION
  Report Type: Spontaneous
  Country: US (occurrence: US)
  Receive Date: 20150317
  Receipt Date: 20150406
  Transmission Date: 20150821
  Serious: Yes (Hospitalization, Other)
  Sender: FDA-Public Use
  Company Number: US-GLENMARK GENERICS INC.-2015GMK014671

PATIENT
  Age: 29 Year
  Sex: Female

DRUGS (3)
  1. THORAZINE [Suspect]
     Active Substance: CHLORPROMAZINE
     Indication: MIGRAINE
     Route: 042
  2. NORETHINDRONE ACETATE TABLETS [Suspect]
     Active Substance: NORETHINDRONE ACETATE
     Indication: ENDOMETRIOSIS
     Dosage: 5 MG, QD
     Route: 048
     Dates: start: 20150126, end: 20150227
  3. LUPRON [Suspect]
     Active Substance: LEUPROLIDE ACETATE
     Indication: ENDOMETRIOSIS
     Dosage: 3.75 MG, PER MONTH
     Dates: start: 20150126, end: 20150227

REACTIONS (8)
  - Heart rate increased [Recovered/Resolved]
  - Dyspnoea [Recovered/Resolved]
  - Abdominal discomfort [Not Recovered/Not Resolved]
  - Chest discomfort [Recovered/Resolved]
  - Migraine [Not Recovered/Not Resolved]
  - Feeling abnormal [Recovered/Resolved]
  - Nausea [Unknown]
  - Diarrhoea [Not Recovered/Not Resolved]

NARRATIVE: CASE EVENT DATE: 20150202
